FAERS Safety Report 6750137-7 (Version None)
Quarter: 2010Q2

REPORT INFORMATION
  Report Type: 
  Country: None (occurrence: None)
  Receive Date: 20100601
  Receipt Date: 20100520
  Transmission Date: 20101027
  Serious: No
  Sender: FDA-Public Use
  Company Number: US-ELI_LILLY_AND_COMPANY-US201005006007

PATIENT
  Sex: Male

DRUGS (5)
  1. CIALIS [Suspect]
     Indication: ERECTILE DYSFUNCTION
     Dosage: 20 MG, OTHER
     Dates: end: 20100501
  2. CIALIS [Suspect]
     Dosage: 20 MG, DAILY (1/D)
     Dates: start: 20100501, end: 20100518
  3. LISINOPRIL [Concomitant]
  4. AMLODIPINE [Concomitant]
  5. CHONDROITIN W/GLUCOSAMINE [Concomitant]

REACTIONS (7)
  - DRUG INEFFECTIVE [None]
  - HANGOVER [None]
  - HEADACHE [None]
  - INTENTIONAL DRUG MISUSE [None]
  - TESTICULAR PAIN [None]
  - TESTICULAR SWELLING [None]
  - VISION BLURRED [None]
